FAERS Safety Report 12637252 (Version 1)
Quarter: 2016Q3

REPORT INFORMATION
  Report Type: Spontaneous
  Country: US (occurrence: US)
  Receive Date: 20160809
  Receipt Date: 20160809
  Transmission Date: 20161109
  Serious: No
  Sender: FDA-Public Use
  Company Number: US-BEH-2015054563

PATIENT
  Sex: Female
  Weight: 94 kg

DRUGS (39)
  1. METOPROLOL. [Concomitant]
     Active Substance: METOPROLOL
  2. LYRICA [Concomitant]
     Active Substance: PREGABALIN
  3. SODIUM CHLORIDE. [Concomitant]
     Active Substance: SODIUM CHLORIDE
  4. SPIRIVA [Concomitant]
     Active Substance: TIOTROPIUM BROMIDE MONOHYDRATE
  5. IBUPROFEN. [Concomitant]
     Active Substance: IBUPROFEN
  6. HUMALOG [Concomitant]
     Active Substance: INSULIN LISPRO
  7. TRAZODONE [Concomitant]
     Active Substance: TRAZODONE HYDROCHLORIDE
  8. FLEXERIL [Concomitant]
     Active Substance: CYCLOBENZAPRINE HYDROCHLORIDE
  9. PRILOSEC [Concomitant]
     Active Substance: OMEPRAZOLE MAGNESIUM
  10. VITAMIN D [Concomitant]
     Active Substance: CHOLECALCIFEROL
  11. CIPRO [Concomitant]
     Active Substance: CIPROFLOXACIN HYDROCHLORIDE
  12. MIRALAX [Concomitant]
     Active Substance: POLYETHYLENE GLYCOL 3350
  13. ATELVIA [Concomitant]
     Active Substance: RISEDRONATE SODIUM
  14. MORPHINE [Concomitant]
     Active Substance: MORPHINE
  15. PLAQUENIL [Concomitant]
     Active Substance: HYDROXYCHLOROQUINE SULFATE
  16. ISOSORBIDE. [Concomitant]
     Active Substance: ISOSORBIDE
  17. MAGNESIUM [Concomitant]
     Active Substance: MAGNESIUM
  18. PRIVIGEN [Suspect]
     Active Substance: HUMAN IMMUNOGLOBULIN G
     Indication: SYSTEMIC LUPUS ERYTHEMATOSUS
     Dosage: 10 GM VIALS
  19. ACETAMINOPHEN. [Concomitant]
     Active Substance: ACETAMINOPHEN
  20. DIPHENHYDRAMINE. [Concomitant]
     Active Substance: DIPHENHYDRAMINE
  21. CHLORTHALIDONE. [Concomitant]
     Active Substance: CHLORTHALIDONE
  22. PRIVIGEN [Suspect]
     Active Substance: HUMAN IMMUNOGLOBULIN G
     Indication: MULTIPLE SCLEROSIS
     Dosage: 5 GM VIALS
     Route: 042
  23. PRIVIGEN [Suspect]
     Active Substance: HUMAN IMMUNOGLOBULIN G
     Indication: SYSTEMIC LUPUS ERYTHEMATOSUS
     Dosage: 5 GM VIALS
     Route: 042
  24. PROMETHAZINE [Concomitant]
     Active Substance: PROMETHAZINE\PROMETHAZINE HYDROCHLORIDE
  25. CEPHALEXIN. [Concomitant]
     Active Substance: CEPHALEXIN
  26. EPIPEN [Concomitant]
     Active Substance: EPINEPHRINE
     Indication: ANAPHYLACTIC REACTION
  27. FOLIC ACID. [Concomitant]
     Active Substance: FOLIC ACID
  28. PROAIR HFA [Concomitant]
     Active Substance: ALBUTEROL SULFATE
  29. CALCIUM [Concomitant]
     Active Substance: CALCIUM
  30. POTASSIUM [Concomitant]
     Active Substance: POTASSIUM
  31. LEVOXYL [Concomitant]
     Active Substance: LEVOTHYROXINE SODIUM
  32. SALAGEN [Concomitant]
     Active Substance: PILOCARPINE HYDROCHLORIDE
  33. VITAMIN B12 [Concomitant]
     Active Substance: CYANOCOBALAMIN
  34. LOSARTAN. [Concomitant]
     Active Substance: LOSARTAN
  35. PREDNISONE. [Concomitant]
     Active Substance: PREDNISONE
  36. LANTUS [Concomitant]
     Active Substance: INSULIN GLARGINE
  37. MYCOPHENOLATE [Concomitant]
     Active Substance: MYCOPHENOLIC ACID
  38. ADVAIR HFA [Concomitant]
     Active Substance: FLUTICASONE PROPIONATE\SALMETEROL XINAFOATE
  39. ALBUTEROL. [Concomitant]
     Active Substance: ALBUTEROL

REACTIONS (1)
  - Urinary tract infection [Unknown]
